FAERS Safety Report 4539837-7 (Version None)
Quarter: 2004Q4

REPORT INFORMATION
  Report Type: 
  Country: None (occurrence: None)
  Receive Date: 20041222
  Receipt Date: 20041209
  Transmission Date: 20050328
  Serious: Yes (Other)
  Sender: FDA-Public Use
  Company Number: USA041285745

PATIENT
  Age: 65 Year
  Sex: Female

DRUGS (5)
  1. PROZAC [Suspect]
     Indication: DEPRESSION
     Dosage: 20 MG
     Dates: start: 20040601
  2. FLUOXETINE [Concomitant]
  3. ZOCOR (SIMVASTATIN RATIOPHARM) [Concomitant]
  4. SYNTHROID [Concomitant]
  5. PREVACID [Concomitant]

REACTIONS (10)
  - CONTUSION [None]
  - EYE DISORDER [None]
  - EYE OPERATION [None]
  - FALL [None]
  - HAEMORRHAGIC DISORDER [None]
  - INFLUENZA LIKE ILLNESS [None]
  - PERIORBITAL HAEMATOMA [None]
  - PHARMACEUTICAL PRODUCT COMPLAINT [None]
  - PRURITUS [None]
  - THROMBOSIS [None]
